FAERS Safety Report 18439602 (Version 1)
Quarter: 2020Q4

REPORT INFORMATION
  Report Type: Spontaneous
  Country: US (occurrence: US)
  Receive Date: 20201029
  Receipt Date: 20201029
  Transmission Date: 20210114
  Serious: No
  Sender: FDA-Public Use
  Company Number: US-AKCEA THERAPEUTICS-2020IS001386

PATIENT
  Age: 61 Year
  Sex: Male

DRUGS (2)
  1. ISSD (INTEGRATED SYRINGE SAFETY DEVICE [Suspect]
     Active Substance: DEVICE
  2. TEGSEDI [Suspect]
     Active Substance: INOTERSEN SODIUM
     Indication: HEREDITARY NEUROPATHIC AMYLOIDOSIS
     Route: 058

REACTIONS (13)
  - Headache [Recovered/Resolved]
  - Creatinine urine abnormal [Not Recovered/Not Resolved]
  - Injection site pain [Unknown]
  - Aspartate aminotransferase increased [Unknown]
  - Urine ketone body present [Not Recovered/Not Resolved]
  - Glomerular filtration rate decreased [Not Recovered/Not Resolved]
  - Blood bilirubin abnormal [Unknown]
  - Chills [Recovered/Resolved]
  - Blood creatinine increased [Not Recovered/Not Resolved]
  - Protein urine present [Not Recovered/Not Resolved]
  - Middle insomnia [Unknown]
  - Urine protein/creatinine ratio abnormal [Unknown]
  - White blood cells urine positive [Not Recovered/Not Resolved]

NARRATIVE: CASE EVENT DATE: 202008
